FAERS Safety Report 22922256 (Version 2)
Quarter: 2024Q3

REPORT INFORMATION
  Report Type: Spontaneous
  Country: US (occurrence: None)
  Receive Date: 20230908
  Receipt Date: 20240906
  Transmission Date: 20241017
  Serious: No
  Sender: DOMPE FARMACEUTICI
  Company Number: US-FARMAPROD-202301-0234

PATIENT
  Sex: Female

DRUGS (9)
  1. OXERVATE [Suspect]
     Active Substance: CENEGERMIN-BKBJ
     Indication: Neurotrophic keratopathy
     Route: 047
     Dates: start: 20230104, end: 20230301
  2. OXERVATE [Suspect]
     Active Substance: CENEGERMIN-BKBJ
     Route: 047
     Dates: start: 20231222
  3. OXERVATE [Suspect]
     Active Substance: CENEGERMIN-BKBJ
  4. RESTASIS [Concomitant]
     Active Substance: CYCLOSPORINE
  5. HYDROXYUREA [Concomitant]
     Active Substance: HYDROXYUREA
  6. VALACYCLOVIR [Concomitant]
     Active Substance: VALACYCLOVIR HYDROCHLORIDE
  7. AUTOLOGOUS HUMAN CORNEAL EPITHELIAL CELLS [Concomitant]
  8. LOTEMAX [Concomitant]
     Active Substance: LOTEPREDNOL ETABONATE
  9. CEQUA [Concomitant]
     Active Substance: CYCLOSPORINE

REACTIONS (7)
  - Photophobia [Not Recovered/Not Resolved]
  - Foreign body sensation in eyes [Unknown]
  - Eye irritation [Not Recovered/Not Resolved]
  - Eye inflammation [Unknown]
  - Eye swelling [Unknown]
  - Skin burning sensation [Recovering/Resolving]
  - Product administration error [Unknown]
